FAERS Safety Report 7058266-8 (Version None)
Quarter: 2010Q4

REPORT INFORMATION
  Report Type: 
  Country: None (occurrence: None)
  Receive Date: 20101022
  Receipt Date: 20101012
  Transmission Date: 20110411
  Serious: Yes (Other)
  Sender: FDA-Public Use
  Company Number: US-PFIZER INC-2009311761

PATIENT
  Sex: Female
  Weight: 83.9 kg

DRUGS (2)
  1. DETROL LA [Suspect]
     Indication: URGE INCONTINENCE
     Dosage: 4 MG, 1X/DAY
     Route: 048
  2. DETROL [Suspect]
     Dosage: UNK

REACTIONS (1)
  - URINARY RETENTION [None]
